FAERS Safety Report 8031613-6 (Version None)
Quarter: 2012Q1

REPORT INFORMATION
  Report Type: 
  Country: None (occurrence: None)
  Receive Date: 20120109
  Receipt Date: 20120102
  Transmission Date: 20120608
  Serious: Yes (Hospitalization)
  Sender: FDA-Public Use
  Company Number: PHHY2012DE000793

PATIENT
  Sex: Female
  Weight: 128 kg

DRUGS (16)
  1. SPIRONOLACTONE [Suspect]
     Dosage: 25 MG, PER DAY
     Route: 048
     Dates: start: 20090527
  2. OMEPRAZOLE [Suspect]
     Dosage: 40 MG, PER DAY
     Route: 048
     Dates: start: 20070822
  3. ALPHA LIPOIC ACID [Suspect]
     Indication: NEUROPATHY PERIPHERAL
     Dosage: 300 MG, PER DAY
     Route: 048
     Dates: start: 20060405
  4. METFORMIN HCL [Concomitant]
     Indication: DIABETES MELLITUS
     Dosage: 2000 MG, PER DAY
     Route: 048
     Dates: start: 20080611
  5. THIENOPYRIDINE [Concomitant]
  6. LANTUS [Concomitant]
     Indication: DIABETES MELLITUS
     Dosage: 32 IU, PER DAY
     Route: 058
     Dates: start: 20010314
  7. RASILEZ [Suspect]
     Indication: CORONARY ARTERY DISEASE
  8. ATENOLOL [Suspect]
     Indication: MYOCARDIAL INFARCTION
     Dosage: 50 MG, PER DAY
     Route: 048
     Dates: start: 19990120
  9. SIMVASTATIN [Suspect]
     Indication: HYPERCHOLESTEROLAEMIA
     Dosage: 40 MG, PER DAY
     Route: 048
     Dates: start: 20050914
  10. ASPIRIN [Suspect]
     Indication: MYOCARDIAL INFARCTION
     Dosage: 100 MG, PER DAY
     Route: 048
     Dates: start: 19990120
  11. RASILEZ [Suspect]
     Indication: HYPERTENSION
     Dosage: 300 MG, PER DAY
     Route: 048
     Dates: start: 20101004
  12. ATENOLOL [Suspect]
     Indication: HYPERTENSION
  13. MOXONIDINE [Suspect]
     Indication: HYPERTENSION
     Dosage: 0.6 MG, PER DAY
     Route: 048
     Dates: start: 20070806
  14. RASILEZ [Suspect]
     Indication: NEPHROPATHY
  15. TORSEMIDE [Suspect]
     Indication: OEDEMA
     Dosage: 5 MG, PER DAY
     Route: 048
     Dates: start: 20050211
  16. INSUMAN RAPID [Concomitant]
     Indication: DIABETES MELLITUS
     Dosage: ABOUT 32 IU, PER DAY
     Route: 058
     Dates: start: 20010314

REACTIONS (1)
  - FALL [None]
